FAERS Safety Report 22318684 (Version 5)
Quarter: 2023Q2

REPORT INFORMATION
  Report Type: Spontaneous
  Country: JP (occurrence: JP)
  Receive Date: 20230515
  Receipt Date: 20230616
  Transmission Date: 20230722
  Serious: Yes (Other)
  Sender: FDA-Public Use
  Company Number: JP-GLAXOSMITHKLINE-JP2023JPN067630

PATIENT

DRUGS (9)
  1. DAPRODUSTAT [Suspect]
     Active Substance: DAPRODUSTAT
     Indication: Nephrogenic anaemia
     Dosage: 4 MG
     Route: 048
     Dates: start: 20230310, end: 20230323
  2. DAPRODUSTAT [Suspect]
     Active Substance: DAPRODUSTAT
     Dosage: 6 MG
     Route: 048
     Dates: start: 20230324, end: 20230511
  3. AMLODIPINE BESYLATE [Concomitant]
     Active Substance: AMLODIPINE BESYLATE
     Dosage: UNK
  4. DONEPEZIL HYDROCHLORIDE [Concomitant]
     Active Substance: DONEPEZIL HYDROCHLORIDE
     Dosage: UNK
  5. IRBESARTAN [Concomitant]
     Active Substance: IRBESARTAN
     Dosage: UNK
  6. LANSOPRAZOLE [Concomitant]
     Active Substance: LANSOPRAZOLE
     Dosage: UNK
  7. MOVICOL (MACROGOL + POTASSIUM CL + SODIUM BICARBONATE + SODIUM CL) [Concomitant]
     Dosage: UNK
  8. ARGAMATE JELLY [Concomitant]
     Dosage: UNK
  9. MIRCERA [Concomitant]
     Active Substance: METHOXY POLYETHYLENE GLYCOL-EPOETIN BETA
     Indication: Nephrogenic anaemia
     Dosage: UNK

REACTIONS (3)
  - Excessive granulation tissue [Unknown]
  - Osteonecrosis of jaw [Recovering/Resolving]
  - Product use issue [Unknown]

NARRATIVE: CASE EVENT DATE: 20230101
